FAERS Safety Report 24563849 (Version 1)
Quarter: 2024Q4

REPORT INFORMATION
  Report Type: Spontaneous
  Country: CN (occurrence: CN)
  Receive Date: 20241030
  Receipt Date: 20241030
  Transmission Date: 20250115
  Serious: Yes (Other)
  Sender: AZURITY PHARMACEUTICALS
  Company Number: CN-AZURITY PHARMACEUTICALS, INC.-AZR202410-000944

PATIENT
  Age: 34 Year
  Sex: Male

DRUGS (4)
  1. VANCOMYCIN HYDROCHLORIDE [Suspect]
     Active Substance: VANCOMYCIN HYDROCHLORIDE
     Indication: Anti-infective therapy
     Dosage: 1 GRAM, BID
     Route: 042
  2. VANCOMYCIN HYDROCHLORIDE [Suspect]
     Active Substance: VANCOMYCIN HYDROCHLORIDE
     Indication: Staphylococcal bacteraemia
     Dosage: 1 GRAM, BID (ON THE 18TH DAY, THE TREATMENT WAS SWITCHED BACK TO INTRAVENOUS GUTTAE OF VANCOMYCIN ON
     Route: 042
  3. AMBROXOL [Concomitant]
     Active Substance: AMBROXOL
     Indication: Productive cough
     Dosage: 30 MILLIGRAM, Q12H
     Route: 065
  4. LIDOCAINE HYDROCHLORIDE [Concomitant]
     Active Substance: LIDOCAINE HYDROCHLORIDE
     Indication: Analgesic therapy
     Dosage: 20 MILLILITER, UNK
     Route: 065

REACTIONS (2)
  - Gastrointestinal haemorrhage [Recovered/Resolved]
  - Gastroduodenal ulcer [Recovered/Resolved]
